FAERS Safety Report 14309070 (Version 3)
Quarter: 2020Q1

REPORT INFORMATION
  Report Type: Spontaneous
  Country: PL (occurrence: PL)
  Receive Date: 20171220
  Receipt Date: 20200224
  Transmission Date: 20200409
  Serious: Yes (Other)
  Sender: FDA-Public Use
  Company Number: PL-AUROBINDO-AUR-APL-2017-46250

PATIENT
  Age: 29 Year
  Sex: Female

DRUGS (5)
  1. CLOTRIMAZOL [Suspect]
     Active Substance: CLOTRIMAZOLE
     Dosage: UNK
     Route: 067
  2. IRON [Suspect]
     Active Substance: IRON
     Indication: PRODUCT USED FOR UNKNOWN INDICATION
     Dosage: UNK
     Route: 065
  3. METOPROLOL. [Suspect]
     Active Substance: METOPROLOL
     Indication: TACHYCARDIA
     Dosage: 75 MILLIGRAM, ONCE A DAY
     Route: 065
  4. AMPICILLIN SODIUM. [Suspect]
     Active Substance: AMPICILLIN SODIUM
     Indication: ENDOCARDITIS
     Dosage: 10 GRAM, ONCE A DAY
     Route: 065
  5. CLOTRIMAZOL [Suspect]
     Active Substance: CLOTRIMAZOLE
     Indication: ENDOCARDITIS
     Dosage: INTRAVAGINAL
     Route: 065

REACTIONS (4)
  - Leukopenia [Unknown]
  - Premature delivery [Unknown]
  - Maternal exposure during pregnancy [Recovered/Resolved]
  - Exposure during pregnancy [Unknown]
